FAERS Safety Report 5636090-8 (Version None)
Quarter: 2008Q1

REPORT INFORMATION
  Report Type: 
  Country: None (occurrence: None)
  Receive Date: 20080225
  Receipt Date: 20080219
  Transmission Date: 20080703
  Serious: Yes (Life-Threatening)
  Sender: FDA-Public Use
  Company Number: JP-JNJFOC-20071205247

PATIENT
  Sex: Male
  Weight: 47 kg

DRUGS (8)
  1. ITRIZOLE [Suspect]
     Route: 041
  2. ITRIZOLE [Suspect]
     Indication: PULMONARY MYCOSIS
     Route: 041
  3. NITRODERM [Concomitant]
     Indication: ANGINA PECTORIS
     Route: 062
  4. FAMOTIDINE [Concomitant]
     Indication: GASTRITIS
     Route: 048
  5. BUFFERIN [Concomitant]
     Indication: ANGINA PECTORIS
     Route: 048
  6. DIOVAN [Concomitant]
     Indication: HYPERTENSION
     Route: 048
  7. CISDYNE [Concomitant]
     Indication: ATYPICAL MYCOBACTERIAL INFECTION
     Route: 048
  8. MUCOSOLVAN [Concomitant]
     Indication: ATYPICAL MYCOBACTERIAL INFECTION
     Route: 048

REACTIONS (2)
  - CARDIAC FAILURE CONGESTIVE [None]
  - LUNG INJURY [None]
